FAERS Safety Report 11454954 (Version 1)
Quarter: 2015Q3

REPORT INFORMATION
  Report Type: Spontaneous
  Country: US (occurrence: US)
  Receive Date: 20150831
  Receipt Date: 20150831
  Transmission Date: 20151125
  Serious: No
  Sender: FDA-Public Use
  Company Number: US-ELI_LILLY_AND_COMPANY-US201006001661

PATIENT
  Age: 35 Year
  Sex: Male

DRUGS (3)
  1. CYMBALTA [Suspect]
     Active Substance: DULOXETINE HYDROCHLORIDE
     Dosage: 60 MG, DAILY (1/D)
     Dates: start: 20100518, end: 20100525
  2. XANAX /USA/ [Concomitant]
     Dosage: UNK, AS NEEDED
  3. CYMBALTA [Suspect]
     Active Substance: DULOXETINE HYDROCHLORIDE
     Indication: ANXIETY
     Dosage: 30 MG, DAILY (1/D)
     Dates: start: 20100408

REACTIONS (6)
  - Insomnia [Unknown]
  - Drug effect decreased [Recovered/Resolved]
  - Urinary hesitation [Unknown]
  - Feeling abnormal [Unknown]
  - Restlessness [Unknown]
  - Obsessive thoughts [Unknown]
